FAERS Safety Report 4619887-2 (Version None)
Quarter: 2005Q1

REPORT INFORMATION
  Report Type: 
  Country: None (occurrence: None)
  Receive Date: 20050321
  Receipt Date: 20050321
  Transmission Date: 20050727
  Serious: Yes (Hospitalization)
  Sender: FDA-Public Use
  Company Number: None

PATIENT
  Sex: Male
  Weight: 100.4 kg

DRUGS (5)
  1. CARMUSTINE [Suspect]
     Indication: GLIOBLASTOMA MULTIFORME
     Dosage: 220MG  IV  ONCE Q 6 WEEKS
     Route: 042
     Dates: start: 20041115
  2. TOPOTECAN   1.5MG/M2/72HR [Suspect]
     Indication: GLIOBLASTOMA MULTIFORME
     Dosage: 3.30MG  IV  OVER 72HRS  WEEKLY X 6 WKS
     Route: 042
     Dates: start: 20041115, end: 20041223
  3. DILANTIN [Concomitant]
  4. RITALIN [Concomitant]
  5. AMBIEN [Concomitant]

REACTIONS (5)
  - ANTICONVULSANT DRUG LEVEL BELOW THERAPEUTIC [None]
  - BRAIN OEDEMA [None]
  - CONVULSION [None]
  - COORDINATION ABNORMAL [None]
  - HEADACHE [None]
